FAERS Safety Report 7854458-6 (Version None)
Quarter: 2011Q3

REPORT INFORMATION
  Report Type: 
  Country: None (occurrence: None)
  Receive Date: 20110916
  Receipt Date: 20110323
  Transmission Date: 20111222
  Serious: Yes (Life-Threatening, Hospitalization, Disabling, Other)
  Sender: FDA-Public Use
  Company Number: 2011SP013338

PATIENT
  Age: 20 Year
  Sex: Female
  Weight: 91.6266 kg

DRUGS (1)
  1. IMPLANON [Suspect]
     Indication: PRODUCT USED FOR UNKNOWN INDICATION
     Dates: start: 20091229, end: 20110301

REACTIONS (1)
  - CEREBROVASCULAR ACCIDENT [None]
